FAERS Safety Report 8816436 (Version 2)
Quarter: 2013Q1

REPORT INFORMATION
  Report Type: Spontaneous
  Country: FR (occurrence: None)
  Receive Date: 20120927
  Receipt Date: 20121221
  Transmission Date: 20140127
  Serious: Yes (Hospitalization)
  Sender: FDA-Public Use
  Company Number: ENTC2012-0417

PATIENT
  Age: 72 Year
  Sex: Male

DRUGS (6)
  1. STALEVO [Suspect]
     Dosage: 150 MG DAILY?
     Route: 048
  2. SELEGILINE [Concomitant]
  3. SIFROL [Concomitant]
  4. ESCITALOPRAM [Concomitant]
  5. LEXOMIL [Concomitant]
  6. STILNOX [Concomitant]

REACTIONS (10)
  - Renal failure acute [None]
  - Rhabdomyolysis [None]
  - Dyskinesia [None]
  - Dehydration [None]
  - Superinfection [None]
  - Subcutaneous haematoma [None]
  - Respiratory distress [None]
  - Altered state of consciousness [None]
  - Sedation [None]
  - Dystonia [None]
